FAERS Safety Report 8453629-8 (Version None)
Quarter: 2012Q2

REPORT INFORMATION
  Report Type: 
  Country: None (occurrence: None)
  Receive Date: 20120620
  Receipt Date: 20120613
  Transmission Date: 20120825
  Serious: Yes (Disabling)
  Sender: FDA-Public Use
  Company Number: MX-MERCK-1206USA00921

PATIENT
  Age: 52 Year
  Sex: Female
  Weight: 62 kg

DRUGS (7)
  1. CALCIUM (UNSPECIFIED) [Concomitant]
     Indication: OSTEOPENIA
     Route: 048
     Dates: start: 20100101
  2. FOSAMAX PLUS D [Suspect]
     Route: 048
     Dates: start: 20120601
  3. CALCITRIOL [Concomitant]
     Indication: OSTEOPENIA
     Route: 048
     Dates: start: 20100101
  4. CHONDROITIN SULFATE SODIUM AND GLUCOSAMINE SULFATE [Concomitant]
     Indication: ARTHRALGIA
     Route: 048
     Dates: start: 20100101
  5. FOSAMAX PLUS D [Suspect]
     Indication: OSTEOPENIA
     Dosage: 70 MG WEEKLY
     Route: 048
     Dates: end: 20120401
  6. FOSAMAX PLUS D [Suspect]
     Route: 048
     Dates: start: 20120601
  7. FOSAMAX PLUS D [Suspect]
     Indication: BONE DECALCIFICATION
     Dosage: 70 MG WEEKLY
     Route: 048
     Dates: end: 20120401

REACTIONS (4)
  - RENAL DISORDER [None]
  - SPINAL PAIN [None]
  - ARTHRALGIA [None]
  - ABASIA [None]
